FAERS Safety Report 17174998 (Version 1)
Quarter: 2019Q4

REPORT INFORMATION
  Report Type: Spontaneous
  Country: CA (occurrence: CA)
  Receive Date: 20191219
  Receipt Date: 20191219
  Transmission Date: 20200122
  Serious: Yes (Other)
  Sender: FDA-Public Use
  Company Number: CA-009507513-1912CAN008001

PATIENT
  Sex: Female

DRUGS (4)
  1. ZENHALE [Suspect]
     Active Substance: FORMOTEROL FUMARATE\MOMETASONE FUROATE
     Dosage: UNK
     Route: 065
  2. ZENHALE [Suspect]
     Active Substance: FORMOTEROL FUMARATE\MOMETASONE FUROATE
     Dosage: 200
     Route: 065
  3. SYMBICORT [Suspect]
     Active Substance: BUDESONIDE\FORMOTEROL FUMARATE DIHYDRATE
     Indication: CHRONIC OBSTRUCTIVE PULMONARY DISEASE
     Dosage: 200MCG, TWO TIMES A DAY
     Route: 055
  4. ZENHALE [Suspect]
     Active Substance: FORMOTEROL FUMARATE\MOMETASONE FUROATE
     Dosage: REDUCED
     Route: 065

REACTIONS (6)
  - Blood iron decreased [Not Recovered/Not Resolved]
  - Pneumonia [Unknown]
  - Cellulitis [Unknown]
  - Respiratory rate decreased [Unknown]
  - Mycobacterium avium complex infection [Unknown]
  - Contusion [Not Recovered/Not Resolved]
